FAERS Safety Report 12554247 (Version 3)
Quarter: 2017Q3

REPORT INFORMATION
  Report Type: Report from Study
  Country: US (occurrence: US)
  Receive Date: 20160713
  Receipt Date: 20170804
  Transmission Date: 20171127
  Serious: Yes (Hospitalization)
  Sender: FDA-Public Use
  Company Number: US-ACTELION-A-US2016-139013

PATIENT
  Age: 37 Year
  Sex: Female
  Weight: 73.92 kg

DRUGS (3)
  1. UPTRAVI [Suspect]
     Active Substance: SELEXIPAG
     Indication: PULMONARY ARTERIAL HYPERTENSION
     Dosage: UNK
     Route: 048
     Dates: start: 20160314
  2. UPTRAVI [Suspect]
     Active Substance: SELEXIPAG
     Dosage: UNK MCG, BID
     Route: 048
  3. UPTRAVI [Suspect]
     Active Substance: SELEXIPAG
     Dosage: 1000 MCG, BID
     Route: 048

REACTIONS (6)
  - Pain [Unknown]
  - Muscular weakness [Unknown]
  - Atrial flutter [Recovering/Resolving]
  - Supraventricular tachycardia [Recovering/Resolving]
  - Cardiac disorder [Unknown]
  - Treatment noncompliance [Unknown]

NARRATIVE: CASE EVENT DATE: 20160627
